FAERS Safety Report 8235382 (Version 4)
Quarter: 2018Q4

REPORT INFORMATION
  Report Type: Spontaneous
  Country: SE (occurrence: SE)
  Receive Date: 20111108
  Receipt Date: 20181106
  Transmission Date: 20190205
  Serious: Yes (Death, Life-Threatening, Hospitalization, Other)
  Sender: FDA-Public Use
  Company Number: SE-PFIZER INC-2011267861

PATIENT
  Age: 91 Year
  Sex: Male

DRUGS (15)
  1. LYRICA [Suspect]
     Active Substance: PREGABALIN
     Indication: ANXIETY
     Dosage: 75 MG, 2X/DAY
     Route: 048
     Dates: start: 20111005, end: 20111006
  2. FURIX [Concomitant]
     Active Substance: FUROSEMIDE
     Dosage: 500 MG
  3. ETALPHA [Concomitant]
     Active Substance: ALFACALCIDOL
     Dosage: 0.25 MG
  4. TROMBYL [Concomitant]
     Active Substance: ASPIRIN
     Dosage: 75 MG, 1X/DAY
  5. MIRTAZAPINE. [Concomitant]
     Active Substance: MIRTAZAPINE
     Dosage: 15 MG, 1X/DAY
     Dates: end: 20110928
  6. HEMINEURIN [Concomitant]
     Active Substance: CLOMETHIAZOLE
     Dosage: 600 MG, 1X/DAY
     Dates: start: 20110929, end: 20111006
  7. ARANESP [Concomitant]
     Active Substance: DARBEPOETIN ALFA
     Dosage: 40 MG/ML, EVERY 2 WEEKS
  8. OXASCAND [Concomitant]
     Active Substance: OXAZEPAM
     Dosage: RECEIVED TOTALLY 15 MG DURING THE NIGHT
     Dates: start: 20111005, end: 20111005
  9. STILNOCT [Concomitant]
     Active Substance: ZOLPIDEM TARTRATE
     Dosage: 5 MG, 1X/DAY
     Dates: start: 20110330, end: 20110927
  10. OMEPRAZOL [Concomitant]
     Active Substance: OMEPRAZOLE
     Dosage: 20 MG
  11. SODIUM CARBONATE [Concomitant]
     Active Substance: SODIUM CARBONATE
     Dosage: 1G
  12. LYRICA [Suspect]
     Active Substance: PREGABALIN
     Indication: SLEEP DISORDER
     Dosage: 75 MG
     Route: 048
     Dates: start: 20111004, end: 20111004
  13. IMDUR [Concomitant]
     Active Substance: ISOSORBIDE MONONITRATE
     Dosage: 30 MG, 1X/DAY
  14. PAMOL [Concomitant]
     Active Substance: ACETAMINOPHEN
     Dosage: 500 MG
     Dates: start: 20110906
  15. LYRICA [Suspect]
     Active Substance: PREGABALIN
     Dosage: 75 MG, 1X/DAY
     Route: 048
     Dates: start: 20111007, end: 20111007

REACTIONS (25)
  - Oliguria [Not Recovered/Not Resolved]
  - C-reactive protein increased [Unknown]
  - Sedation [Not Recovered/Not Resolved]
  - Dysuria [Fatal]
  - Dysphagia [Not Recovered/Not Resolved]
  - Tremor [Not Recovered/Not Resolved]
  - Mobility decreased [Fatal]
  - Visual impairment [Fatal]
  - Somnolence [Not Recovered/Not Resolved]
  - Vision blurred [Not Recovered/Not Resolved]
  - Dysarthria [Not Recovered/Not Resolved]
  - Sputum increased [Not Recovered/Not Resolved]
  - Product use in unapproved indication [Unknown]
  - Cardiac failure [Fatal]
  - Abdominal pain lower [Not Recovered/Not Resolved]
  - Daydreaming [Not Recovered/Not Resolved]
  - Fatigue [Not Recovered/Not Resolved]
  - Apathy [Not Recovered/Not Resolved]
  - Dysphagia [Fatal]
  - Anxiety [Not Recovered/Not Resolved]
  - Hypothermia [Unknown]
  - Dysstasia [Not Recovered/Not Resolved]
  - Urinary incontinence [Not Recovered/Not Resolved]
  - Cough [Not Recovered/Not Resolved]
  - Medication error [Unknown]

NARRATIVE: CASE EVENT DATE: 20111005
